FAERS Safety Report 5093730-2 (Version None)
Quarter: 2006Q3

REPORT INFORMATION
  Report Type: 
  Country: None (occurrence: None)
  Receive Date: 20060728
  Receipt Date: 20060421
  Transmission Date: 20061208
  Serious: No
  Sender: FDA-Public Use
  Company Number: 252603

PATIENT
  Age: 69 Year
  Sex: Male
  Weight: 73.9 kg

DRUGS (2)
  1. LEVEMIR [Suspect]
     Indication: DIABETES MELLITUS
     Dosage: 8-10 UNITS, BID, SUBCUTANEOUS
     Route: 058
     Dates: start: 20060214, end: 20060301
  2. HUMALOG [Concomitant]

REACTIONS (1)
  - BLOOD GLUCOSE INCREASED [None]
